FAERS Safety Report 9593126 (Version 1)
Quarter: 2013Q3

REPORT INFORMATION
  Report Type: Spontaneous
  Country: US (occurrence: None)
  Receive Date: 20130930
  Receipt Date: 20130930
  Transmission Date: 20140515
  Serious: Yes (Other)
  Sender: FDA-Public Use
  Company Number: 1000046455

PATIENT
  Age: 73 Year
  Sex: Female

DRUGS (2)
  1. LINZESS (LINACLOTIDE) [Suspect]
     Indication: CONSTIPATION
  2. NATURE THROID (THYROID) (THYROID) [Concomitant]

REACTIONS (3)
  - Headache [None]
  - Asthenia [None]
  - Malaise [None]
